FAERS Safety Report 4763972-1 (Version None)
Quarter: 2005Q3

REPORT INFORMATION
  Report Type: 
  Country: None (occurrence: None)
  Receive Date: 20050906
  Receipt Date: 20050609
  Transmission Date: 20060218
  Serious: No
  Sender: FDA-Public Use
  Company Number: 2005-BP-09684BP

PATIENT
  Sex: Male

DRUGS (1)
  1. SPIRIVA [Suspect]
     Dosage: (18 MG),

REACTIONS (3)
  - EAR INFECTION [None]
  - EAR PAIN [None]
  - OTORRHOEA [None]
